FAERS Safety Report 8654844 (Version 7)
Quarter: 2014Q2

REPORT INFORMATION
  Report Type: Spontaneous
  Country: US (occurrence: US)
  Receive Date: 20120709
  Receipt Date: 20140424
  Transmission Date: 20141212
  Serious: Yes (Hospitalization)
  Sender: FDA-Public Use
  Company Number: US-GLAXOSMITHKLINE-A0983628A

PATIENT
  Age: 43 Year
  Sex: Female

DRUGS (3)
  1. FLOLAN [Suspect]
     Indication: COR PULMONALE CHRONIC
     Dosage: 35NGKM CONTINUOUS
     Route: 065
     Dates: start: 20090130
  2. REVATIO [Concomitant]
  3. LASIX [Concomitant]

REACTIONS (13)
  - Renal failure [Recovering/Resolving]
  - Lower respiratory tract infection [Unknown]
  - Device related infection [Unknown]
  - Chest pain [Unknown]
  - Productive cough [Unknown]
  - Dyspnoea [Unknown]
  - Fatigue [Unknown]
  - Headache [Unknown]
  - Adverse event [Unknown]
  - Chest discomfort [Not Recovered/Not Resolved]
  - Hyperhidrosis [Recovered/Resolved]
  - Diarrhoea [Recovered/Resolved]
  - Faecal incontinence [Recovered/Resolved]
